FAERS Safety Report 6473186-5 (Version None)
Quarter: 2009Q4

REPORT INFORMATION
  Report Type: 
  Country: None (occurrence: None)
  Receive Date: 20091204
  Receipt Date: 20081209
  Transmission Date: 20100525
  Serious: Yes (Life-Threatening, Hospitalization, Other)
  Sender: FDA-Public Use
  Company Number: JP-ELI_LILLY_AND_COMPANY-JP200805002001

PATIENT
  Sex: Male
  Weight: 54 kg

DRUGS (14)
  1. GEMZAR [Suspect]
     Indication: LUNG CARCINOMA CELL TYPE UNSPECIFIED STAGE IV
     Dosage: 1000 MG/M2, UNK
     Route: 042
     Dates: start: 20080124, end: 20080305
  2. SPIRIVA [Concomitant]
     Indication: CHRONIC OBSTRUCTIVE PULMONARY DISEASE
     Dosage: 18 UG, DAILY (1/D)
     Route: 055
     Dates: start: 20080123, end: 20080311
  3. MEDICON [Concomitant]
     Indication: COUGH
     Dosage: 45 MG, DAILY (1/D)
     Route: 048
     Dates: start: 20080116, end: 20080311
  4. MUCOSOLVAN [Concomitant]
     Indication: PRODUCTIVE COUGH
     Dosage: 45 MG, DAILY (1/D)
     Route: 048
     Dates: start: 20080116, end: 20080311
  5. NASEA [Concomitant]
     Indication: PROPHYLAXIS
     Dosage: 0.3 MG, UNK
     Route: 042
     Dates: start: 20080124, end: 20080305
  6. MUCODYNE [Concomitant]
     Indication: PRODUCTIVE COUGH
     Dosage: 1500 MG, DAILY (1/D)
     Route: 048
     Dates: start: 20080119, end: 20080123
  7. MAGMITT [Concomitant]
     Indication: CONSTIPATION
     Dosage: 990 MG, DAILY (1/D)
     Route: 048
     Dates: start: 20080119, end: 20080207
  8. MAGMITT [Concomitant]
     Dosage: 990 MG, DAILY (1/D)
     Route: 048
     Dates: start: 20080227, end: 20080304
  9. ZITHROMAX [Concomitant]
     Dosage: 500 MG, DAILY (1/D)
     Route: 048
     Dates: start: 20080123, end: 20080125
  10. CODEINE PHOSPHATE [Concomitant]
     Indication: COUGH
     Dosage: 60 MG, DAILY (1/D)
     Route: 048
     Dates: start: 20080119, end: 20080207
  11. AMOBAN [Concomitant]
     Indication: INSOMNIA
     Dosage: 7.5 MG, AS NEEDED
     Route: 048
     Dates: start: 20080123
  12. UNASYNA [Concomitant]
     Indication: PYREXIA
     Dosage: 6 G, DAILY (1/D)
     Route: 042
     Dates: start: 20080123, end: 20080201
  13. PRIMPERAN                               /SCH/ [Concomitant]
     Indication: PROPHYLAXIS
     Dosage: 10 MG, UNK
     Route: 042
     Dates: start: 20080124, end: 20080305
  14. PRIMPERAN                               /SCH/ [Concomitant]
     Dosage: 10 MG, UNK
     Route: 042
     Dates: start: 20080311, end: 20080311

REACTIONS (7)
  - ANAEMIA [None]
  - CONSTIPATION [None]
  - GASTRIC CANCER [None]
  - GASTRIC ULCER [None]
  - GASTROINTESTINAL PERFORATION [None]
  - INTESTINAL OBSTRUCTION [None]
  - PYREXIA [None]
